FAERS Safety Report 21274254 (Version 1)
Quarter: 2022Q3

REPORT INFORMATION
  Report Type: Spontaneous
  Country: FR (occurrence: FR)
  Receive Date: 20220831
  Receipt Date: 20220831
  Transmission Date: 20221026
  Serious: Yes (Hospitalization)
  Sender: FDA-Public Use
  Company Number: None

PATIENT
  Age: 56 Year
  Sex: Female

DRUGS (13)
  1. ALIMTA [Suspect]
     Active Substance: PEMETREXED DISODIUM
     Indication: Lung adenocarcinoma
     Dosage: 805 MG, UNKNOWN
     Route: 042
     Dates: start: 20170904, end: 20180117
  2. IMFINZI [Suspect]
     Active Substance: DURVALUMAB
     Indication: Lung adenocarcinoma
     Dosage: 480 MG, UNKNOWN
     Route: 042
     Dates: start: 20180302, end: 20180605
  3. IMFINZI [Suspect]
     Active Substance: DURVALUMAB
     Dosage: 460 MG, UNKNOWN
     Route: 042
     Dates: start: 20180619, end: 20180905
  4. IMFINZI [Suspect]
     Active Substance: DURVALUMAB
     Dosage: 470 MG, UNKNOWN
     Route: 042
     Dates: start: 20180919, end: 20181017
  5. IMFINZI [Suspect]
     Active Substance: DURVALUMAB
     Dosage: 490 MG, UNKNOWN
     Route: 042
     Dates: start: 20181121, end: 20181212
  6. IMFINZI [Suspect]
     Active Substance: DURVALUMAB
     Dosage: 520 MG, UNKNOWN
     Route: 042
     Dates: start: 20190104, end: 20190222
  7. CARBOPLATIN [Suspect]
     Active Substance: CARBOPLATIN
     Indication: Lung adenocarcinoma
     Dosage: 700 MG, UNKNOWN
     Route: 042
     Dates: start: 20171110, end: 20180117
  8. CISPLATIN [Suspect]
     Active Substance: CISPLATIN
     Indication: Lung adenocarcinoma
     Dosage: 121 MG, UNKNOWN
     Route: 042
     Dates: start: 20170904, end: 20170928
  9. INNOVAIR [Concomitant]
     Active Substance: BECLOMETHASONE DIPROPIONATE\FORMOTEROL
     Dosage: UNK, UNKNOWN
     Route: 065
  10. VENTOLIN [Concomitant]
     Active Substance: ALBUTEROL SULFATE
     Dosage: UNK, UNKNOWN
     Route: 065
  11. VENLAFAXINE [Concomitant]
     Active Substance: VENLAFAXINE HYDROCHLORIDE
     Dosage: UNK, UNKNOWN
     Route: 065
  12. XANAX [Concomitant]
     Active Substance: ALPRAZOLAM
     Dosage: UNK, UNKNOWN
     Route: 065
  13. LEVOTHYROXINE [Concomitant]
     Active Substance: LEVOTHYROXINE
     Dosage: UNK, UNKNOWN
     Route: 065

REACTIONS (1)
  - Ventricular dysfunction [Not Recovered/Not Resolved]

NARRATIVE: CASE EVENT DATE: 20220405
